FAERS Safety Report 24885770 (Version 1)
Quarter: 2025Q1

REPORT INFORMATION
  Report Type: Report from Study
  Country: KR (occurrence: KR)
  Receive Date: 20250125
  Receipt Date: 20250125
  Transmission Date: 20250408
  Serious: Yes (Hospitalization)
  Sender: ABBVIE
  Company Number: KR-ABBVIE-6097937

PATIENT
  Age: 75 Year
  Sex: Male
  Weight: 51 kg

DRUGS (27)
  1. VENCLEXTA [Suspect]
     Active Substance: VENETOCLAX
     Indication: Acute myeloid leukaemia
     Route: 048
     Dates: start: 20241227, end: 20250112
  2. VIDAZA [Concomitant]
     Active Substance: AZACITIDINE
     Indication: Acute myeloid leukaemia
     Dosage: INJECTION 100MG
     Route: 042
     Dates: start: 20241227, end: 20250102
  3. LEVOFLOXACIN [Concomitant]
     Active Substance: LEVOFLOXACIN
     Indication: Infection prophylaxis
     Dosage: INJECTION 500MG/100ML
     Route: 042
     Dates: start: 20241230, end: 20250101
  4. LEVOFLOXACIN [Concomitant]
     Active Substance: LEVOFLOXACIN
     Indication: Infection prophylaxis
     Dosage: INJECTION 500MG/100ML
     Route: 042
     Dates: start: 20241221, end: 20241229
  5. ALDACTONE [Concomitant]
     Active Substance: SPIRONOLACTONE
     Indication: Pleural effusion
     Dosage: FILM COATED TABLET 25MG
     Route: 048
     Dates: start: 20241231, end: 20250108
  6. ALDACTONE [Concomitant]
     Active Substance: SPIRONOLACTONE
     Indication: Pleural effusion
     Route: 048
     Dates: start: 20241227, end: 20241227
  7. HERBALS [Concomitant]
     Active Substance: HERBALS
     Indication: Gastrointestinal disorder prophylaxis
     Dosage: TABLET
     Route: 048
     Dates: start: 20241230, end: 20241230
  8. HERBALS [Concomitant]
     Active Substance: HERBALS
     Indication: Gastrointestinal disorder prophylaxis
     Route: 048
     Dates: start: 20241231, end: 20250105
  9. Furix [Concomitant]
     Indication: Pleural effusion
     Route: 048
     Dates: start: 20241231, end: 20250108
  10. MAXIPIME [Concomitant]
     Active Substance: CEFEPIME HYDROCHLORIDE
     Indication: Infection prophylaxis
     Route: 042
     Dates: start: 20241220, end: 20241229
  11. MAXIPIME [Concomitant]
     Active Substance: CEFEPIME HYDROCHLORIDE
     Indication: Infection prophylaxis
     Route: 042
     Dates: start: 20241230, end: 20250108
  12. PARACID [Concomitant]
     Indication: Pyrexia
     Route: 042
     Dates: start: 20241229, end: 20250107
  13. TAPOCIN [Concomitant]
     Indication: Pyrexia
     Dosage: INJECTION 400MG
     Route: 042
     Dates: start: 20241230, end: 20250102
  14. PENIRAMIN [Concomitant]
     Indication: Premedication
     Route: 042
     Dates: start: 20241222, end: 20250113
  15. Levoplus [Concomitant]
     Indication: Infection prophylaxis
     Dosage: TABLET 750MG
     Route: 048
     Dates: start: 20250108, end: 20250112
  16. ANAPROX [Concomitant]
     Active Substance: NAPROXEN SODIUM
     Indication: Antipyresis
     Dosage: TABLET 275MG
     Route: 048
     Dates: start: 20250108, end: 20250112
  17. ANAPROX [Concomitant]
     Active Substance: NAPROXEN SODIUM
     Indication: Antipyresis
     Dosage: TABLET 275MG
     Route: 048
     Dates: start: 20241231, end: 20250106
  18. ALOXI [Concomitant]
     Active Substance: PALONOSETRON HYDROCHLORIDE
     Indication: Prophylaxis of nausea and vomiting
     Dosage: INJECTION 5ML
     Route: 042
     Dates: start: 20241227, end: 20250102
  19. Esomezol [Concomitant]
     Indication: Gastritis prophylaxis
     Dosage: CAPSULE 20MG
     Route: 048
     Dates: start: 20250103, end: 20250112
  20. LASIX [Concomitant]
     Active Substance: FUROSEMIDE
     Indication: Prophylaxis
     Route: 042
     Dates: start: 20241230, end: 20241230
  21. LASIX [Concomitant]
     Active Substance: FUROSEMIDE
     Indication: Prophylaxis
     Route: 042
     Dates: start: 20241228, end: 20241229
  22. BANAN [Concomitant]
     Active Substance: CEFPODOXIME PROXETIL
     Indication: Infection prophylaxis
     Dosage: TABLET
     Route: 048
     Dates: start: 20250108, end: 20250112
  23. TRANEXAMIC ACID [Concomitant]
     Active Substance: TRANEXAMIC ACID
     Indication: Haemorrhage prophylaxis
     Dosage: INJECTION 500MG/5ML
     Route: 042
     Dates: start: 20250102, end: 20250102
  24. PHAZYME COMPLEX [Concomitant]
     Indication: Gastrointestinal disorder prophylaxis
     Route: 048
     Dates: start: 20241231, end: 20250105
  25. PHAZYME COMPLEX [Concomitant]
     Indication: Gastrointestinal disorder prophylaxis
     Dosage: TABLET
     Route: 048
     Dates: start: 20241230, end: 20241230
  26. NOXAFIL [Concomitant]
     Active Substance: POSACONAZOLE
     Indication: Antifungal prophylaxis
     Route: 048
     Dates: start: 20241228, end: 20250112
  27. NOXAFIL [Concomitant]
     Active Substance: POSACONAZOLE
     Indication: Antifungal prophylaxis
     Route: 048
     Dates: start: 20241227, end: 20241227

REACTIONS (1)
  - COVID-19 [Recovered/Resolved]

NARRATIVE: CASE EVENT DATE: 20250103
